FAERS Safety Report 8548923-6 (Version None)
Quarter: 2012Q3

REPORT INFORMATION
  Report Type: 
  Country: None (occurrence: None)
  Receive Date: 20120730
  Receipt Date: 20120726
  Transmission Date: 20120928
  Serious: Yes (Other)
  Sender: FDA-Public Use
  Company Number: PHHY2012NL064749

PATIENT
  Sex: Female

DRUGS (4)
  1. ZOMETA [Suspect]
     Dosage: 4 MG/100 ML ONCE PER 28 DAYS
     Dates: start: 20100707
  2. ZOMETA [Suspect]
     Indication: BREAST CANCER METASTATIC
     Dosage: 4 MG/100 ML ONCE PER 28 DAYS
  3. ZOMETA [Suspect]
     Dosage: 4 MG/100 ML ONCE PER 28 DAYS
     Dates: start: 20120620
  4. ZOMETA [Suspect]
     Dosage: 4 MG/100 ML ONCE PER 28 DAYS
     Dates: start: 20120719, end: 20120719

REACTIONS (1)
  - TERMINAL STATE [None]
